FAERS Safety Report 8419453-7 (Version None)
Quarter: 2012Q2

REPORT INFORMATION
  Report Type: 
  Country: None (occurrence: None)
  Receive Date: 20120607
  Receipt Date: 20120530
  Transmission Date: 20120825
  Serious: Yes (Hospitalization)
  Sender: FDA-Public Use
  Company Number: JP-VIIV HEALTHCARE LIMITED-B0805179A

PATIENT
  Age: 5 Decade
  Sex: Male

DRUGS (6)
  1. EPZICOM [Suspect]
     Dosage: 90IUAX PER DAY
     Route: 048
     Dates: start: 20120530, end: 20120530
  2. ZOLPIDEM [Concomitant]
     Route: 048
  3. EPZICOM [Suspect]
     Indication: HIV INFECTION
     Route: 048
  4. NORVIR [Concomitant]
     Indication: HIV INFECTION
     Route: 048
  5. PREZISTA [Concomitant]
     Indication: HIV INFECTION
     Route: 048
  6. OLMESARTAN MEDOXOMIL [Concomitant]
     Route: 048

REACTIONS (2)
  - OVERDOSE [None]
  - RENAL IMPAIRMENT [None]
